FAERS Safety Report 6370910-7 (Version None)
Quarter: 2009Q3

REPORT INFORMATION
  Report Type: 
  Country: None (occurrence: None)
  Receive Date: 20090923
  Receipt Date: 20070507
  Transmission Date: 20100115
  Serious: Yes (Hospitalization, Other)
  Sender: FDA-Public Use
  Company Number: US-ASTRAZENECA-2006UW23270

PATIENT
  Age: 46 Year
  Sex: Female
  Weight: 129.7 kg

DRUGS (7)
  1. SEROQUEL [Suspect]
     Indication: BIPOLAR DISORDER
     Route: 048
     Dates: start: 20010501, end: 20030101
  2. SEROQUEL [Suspect]
     Dosage: 50 TO 400 MG
     Route: 048
     Dates: start: 20021106
  3. HALDOL [Concomitant]
     Dates: start: 20010501
  4. RISPERDAL [Concomitant]
     Dates: start: 20010501
  5. RISPERDAL [Concomitant]
     Route: 048
     Dates: start: 20020904
  6. TEGRETOL [Concomitant]
     Route: 048
     Dates: start: 20020904
  7. ZOLOFT [Concomitant]
     Route: 048
     Dates: start: 20020904

REACTIONS (6)
  - DIABETES MELLITUS [None]
  - DIABETES MELLITUS INADEQUATE CONTROL [None]
  - DIABETIC KETOACIDOSIS [None]
  - HYPERGLYCAEMIA [None]
  - NEUROLEPTIC MALIGNANT SYNDROME [None]
  - TYPE 2 DIABETES MELLITUS [None]
